FAERS Safety Report 9305810 (Version 2)
Quarter: 2013Q2

REPORT INFORMATION
  Report Type: Spontaneous
  Country: CA (occurrence: None)
  Receive Date: 20130513
  Receipt Date: 20130520
  Transmission Date: 20140414
  Serious: Yes (Hospitalization)
  Sender: FDA-Public Use
  Company Number: 2013035641

PATIENT
  Age: 77 Year
  Sex: Male

DRUGS (6)
  1. PRIVIGEN (IMMUNE GLOBULIN INTRAVENOUS (HUMAN) 10% LIQUID) [Suspect]
     Dosage: MAX. INFUSION RATE 200 ML/H??
     Route: 042
     Dates: start: 20130405, end: 20130405
  2. SYMBICORT [Concomitant]
  3. ALL OTHER THERAPEUTIC PRODUCTS (ALL OTHER THERAPEUTIC PRODUCTS) [Concomitant]
  4. VITAMIN B12 /00056201/(CYANOCOBALAMIN) [Concomitant]
  5. BENADRYL /0000402/(DIPHENHYDRAMINE HYDROCHLORIDE) [Concomitant]
  6. EXTRA STRENGTH TYLENOL PM (TYLENOL PM/012088101/) [Concomitant]

REACTIONS (5)
  - Cardiac failure congestive [None]
  - Atelectasis [None]
  - Tachyarrhythmia [None]
  - Oedema peripheral [None]
  - Atrial flutter [None]
